FAERS Safety Report 19844546 (Version 1)
Quarter: 2021Q3

REPORT INFORMATION
  Report Type: Spontaneous
  Country: AU (occurrence: AU)
  Receive Date: 20210916
  Receipt Date: 20210916
  Transmission Date: 20211014
  Serious: Yes (Death, Other)
  Sender: FDA-Public Use
  Company Number: AU-PURDUE PHARMA-USA-2021-0283851

PATIENT
  Age: 54 Year
  Sex: Male

DRUGS (3)
  1. FENTANYL. [Suspect]
     Active Substance: FENTANYL
     Indication: LIGAMENT OPERATION
     Dosage: 100 MCG/HR, UNK
     Route: 062
     Dates: start: 2018
  2. OXYCODONE HYDROCHLORIDE (SIMILAR TO NDA 22?272) [Suspect]
     Active Substance: OXYCODONE HYDROCHLORIDE
     Indication: LIGAMENT OPERATION
     Dosage: 5 MG, Q4H PRN
     Route: 048
     Dates: start: 2018
  3. OXYCODONE HYDROCHLORIDE (SIMILAR TO NDA 22?272) [Suspect]
     Active Substance: OXYCODONE HYDROCHLORIDE
     Dosage: 10 MG, Q4H PRN
     Route: 048
     Dates: start: 2018

REACTIONS (4)
  - Pneumonia aspiration [Unknown]
  - Product prescribing error [Unknown]
  - Wrong patient received product [Unknown]
  - Toxicity to various agents [Fatal]

NARRATIVE: CASE EVENT DATE: 2018
